FAERS Safety Report 8097709-8 (Version None)
Quarter: 2012Q1

REPORT INFORMATION
  Report Type: 
  Country: None (occurrence: None)
  Receive Date: 20120128
  Receipt Date: 20110713
  Transmission Date: 20120608
  Serious: Yes (Other)
  Sender: FDA-Public Use
  Company Number: US-ABBOTT-11P-163-0839010-00

PATIENT
  Sex: Male
  Weight: 80.812 kg

DRUGS (1)
  1. HUMIRA [Suspect]
     Indication: CROHN'S DISEASE
     Route: 058
     Dates: start: 20110218

REACTIONS (2)
  - SKIN INFECTION [None]
  - GASTROINTESTINAL INFECTION [None]
